FAERS Safety Report 7569677-6 (Version None)
Quarter: 2011Q2

REPORT INFORMATION
  Report Type: 
  Country: None (occurrence: None)
  Receive Date: 20110624
  Receipt Date: 20110621
  Transmission Date: 20111010
  Serious: No
  Sender: FDA-Public Use
  Company Number: US-PFIZER INC-2011138000

PATIENT
  Sex: Male

DRUGS (1)
  1. REVATIO [Suspect]
     Dosage: UNK
     Route: 048
     Dates: start: 20110601, end: 20110601

REACTIONS (4)
  - ABDOMINAL DISCOMFORT [None]
  - POLLAKIURIA [None]
  - SOMNOLENCE [None]
  - DIZZINESS [None]
